FAERS Safety Report 6425390-X (Version None)
Quarter: 2009Q4

REPORT INFORMATION
  Report Type: 
  Country: None (occurrence: None)
  Receive Date: 20091103
  Receipt Date: 20091026
  Transmission Date: 20100525
  Serious: Yes (Other)
  Sender: FDA-Public Use
  Company Number: B0601345A

PATIENT
  Age: 50 Year
  Sex: Male

DRUGS (5)
  1. ZOFRAN [Suspect]
     Dosage: 8MG PER DAY
     Route: 048
     Dates: start: 20080101
  2. GLEEVEC [Suspect]
     Dosage: 400MG PER DAY
     Route: 048
     Dates: start: 20080121
  3. LOBIVON [Concomitant]
     Indication: HYPERTENSION
     Dosage: 5MG PER DAY
     Route: 048
  4. SUTRIL [Concomitant]
     Indication: HYPERTENSION
     Dosage: 10MG PER DAY
     Route: 048
  5. BOI-K [Concomitant]
     Route: 048

REACTIONS (3)
  - BLINDNESS [None]
  - NORMAL TENSION GLAUCOMA [None]
  - OPTIC NEURITIS [None]
